FAERS Safety Report 9127184 (Version 1)
Quarter: 2013Q1

REPORT INFORMATION
  Report Type: Spontaneous
  Country: US (occurrence: US)
  Receive Date: 20130228
  Receipt Date: 20130228
  Transmission Date: 20140127
  Serious: Yes (Hospitalization)
  Sender: FDA-Public Use
  Company Number: US-MYLANLABS-2012S1025260

PATIENT
  Age: 60 Year
  Sex: Male

DRUGS (3)
  1. ATENOLOL TABLETS, USP [Suspect]
     Indication: BLOOD PRESSURE
     Route: 048
     Dates: start: 201211, end: 20121116
  2. ATENOLOL TABLETS, USP [Suspect]
     Indication: HEART RATE
     Route: 048
     Dates: start: 201211, end: 20121116
  3. ATENOLOL TABLETS, USP [Suspect]
     Indication: ARRHYTHMIA
     Route: 048
     Dates: start: 201211, end: 20121116

REACTIONS (3)
  - Drug effect decreased [Recovered/Resolved]
  - Arrhythmia [Recovered/Resolved]
  - Heart rate increased [Recovered/Resolved]
